FAERS Safety Report 18522511 (Version 1)
Quarter: 2020Q4

REPORT INFORMATION
  Report Type: Spontaneous
  Country: US (occurrence: US)
  Receive Date: 20201119
  Receipt Date: 20201119
  Transmission Date: 20210114
  Serious: Yes (Other)
  Sender: FDA-Public Use
  Company Number: None

PATIENT
  Age: 72 Year
  Sex: Female
  Weight: 61 kg

DRUGS (5)
  1. HEPARIN [Suspect]
     Active Substance: HEPARIN SODIUM
     Indication: ACUTE MYOCARDIAL INFARCTION
     Dosage: ?          OTHER FREQUENCY:ONCE;?
     Route: 042
     Dates: start: 20200926, end: 20200926
  2. CLOPIDOGREL [Concomitant]
     Active Substance: CLOPIDOGREL BISULFATE
     Dates: start: 20200927, end: 20200929
  3. HEPARIN [Suspect]
     Active Substance: HEPARIN SODIUM
     Indication: ACUTE CORONARY SYNDROME
     Dosage: ?          OTHER FREQUENCY:UNIT/KG/H DRIP;?
     Route: 041
     Dates: start: 20201001, end: 20201004
  4. ASPIRIN. [Concomitant]
     Active Substance: ASPIRIN
     Dates: start: 20200927, end: 20201003
  5. TICAGRELOR. [Concomitant]
     Active Substance: TICAGRELOR
     Dates: start: 20200929, end: 20201006

REACTIONS (2)
  - Multiple organ dysfunction syndrome [None]
  - Cardiogenic shock [None]

NARRATIVE: CASE EVENT DATE: 20201003
